FAERS Safety Report 5319678-3 (Version None)
Quarter: 2007Q2

REPORT INFORMATION
  Report Type: 
  Country: None (occurrence: None)
  Receive Date: 20070501
  Receipt Date: 20070417
  Transmission Date: 20071010
  Serious: Yes (Hospitalization)
  Sender: FDA-Public Use
  Company Number: 2007S1003306

PATIENT
  Sex: Female

DRUGS (3)
  1. TRAMADOL HYDROCHLORIDE [Suspect]
     Indication: HEADACHE
     Dosage: 50 MG; 3 TIMES A DAY; ORAL
     Route: 048
     Dates: start: 20070301
  2. XANAX [Suspect]
     Indication: ANXIETY
     Dosage: 8 MG; DAILY; ORAL
     Route: 048
     Dates: end: 20070408
  3. SUMATRIPTAN SUCCINATE [Concomitant]

REACTIONS (7)
  - CONVULSION [None]
  - HEAD INJURY [None]
  - HYPERTENSION [None]
  - LOSS OF CONSCIOUSNESS [None]
  - PARAESTHESIA [None]
  - STRESS [None]
  - TREATMENT NONCOMPLIANCE [None]
